FAERS Safety Report 6975872-7 (Version None)
Quarter: 2010Q3

REPORT INFORMATION
  Report Type: 
  Country: None (occurrence: None)
  Receive Date: 20100910
  Receipt Date: 20100830
  Transmission Date: 20110219
  Serious: Yes (Death, Hospitalization)
  Sender: FDA-Public Use
  Company Number: US-ELI_LILLY_AND_COMPANY-US201008008757

PATIENT
  Age: 61 Year
  Sex: Female

DRUGS (4)
  1. ZYPREXA [Suspect]
     Indication: BIPOLAR DISORDER
     Dosage: 5 MG, EACH MORNING
     Dates: start: 20100816
  2. ZYPREXA [Suspect]
     Dosage: 20 MG, EACH EVENING
  3. LITHIUM CARBONATE [Concomitant]
     Dosage: 300 MG, EACH MORNING
  4. LITHIUM CARBONATE [Concomitant]
     Dosage: 600 MG, EACH EVENING

REACTIONS (3)
  - HOSPITALISATION [None]
  - OVERDOSE [None]
  - PULMONARY EMBOLISM [None]
